FAERS Safety Report 24341224 (Version 1)
Quarter: 2024Q3

REPORT INFORMATION
  Report Type: Spontaneous
  Country: US (occurrence: US)
  Receive Date: 20240919
  Receipt Date: 20240919
  Transmission Date: 20241016
  Serious: No
  Sender: ABBVIE
  Company Number: US-ABBVIE-5926811

PATIENT
  Age: 39 Year
  Sex: Female
  Weight: 84.8 kg

DRUGS (7)
  1. VIIBRYD [Suspect]
     Active Substance: VILAZODONE HYDROCHLORIDE
     Indication: Product used for unknown indication
     Dosage: 10 MG
     Route: 065
     Dates: start: 20240903
  2. ARMOUR THYROID [Concomitant]
     Active Substance: THYROID, PORCINE
     Indication: Product used for unknown indication
     Dosage: 120 MG
  3. LUMRYZ [Suspect]
     Active Substance: SODIUM OXYBATE
     Indication: Cataplexy
     Dosage: EXTENDED-RELEASE ORAL SUSPENSION, ONCE NIGHTLY AT BEDTIME
     Route: 048
     Dates: start: 20240502
  4. HUMALOG [Suspect]
     Active Substance: INSULIN LISPRO
     Indication: Type 1 diabetes mellitus
     Dosage: 100 U/ML, CONCENTRATION- 100 [PRESUMED UNITS]/ML, LOWER DOSES
     Route: 065
     Dates: start: 2024
  5. HUMALOG [Suspect]
     Active Substance: INSULIN LISPRO
     Indication: Type 1 diabetes mellitus
     Dosage: 100 U/ML, CONCENTRATION- 100 [PRESUMED UNITS]/ML
     Route: 065
  6. GABAPENTIN [Concomitant]
     Active Substance: GABAPENTIN
     Indication: Product used for unknown indication
     Dosage: 300 MG
  7. VYVANSE [Concomitant]
     Active Substance: LISDEXAMFETAMINE DIMESYLATE
     Indication: Product used for unknown indication
     Dosage: 10 MG

REACTIONS (7)
  - Feeling jittery [Unknown]
  - Drug hypersensitivity [Not Recovered/Not Resolved]
  - Palpitations [Unknown]
  - Restlessness [Unknown]
  - Feeling hot [Unknown]
  - Tremor [Unknown]
  - Anxiety [Unknown]

NARRATIVE: CASE EVENT DATE: 20240101
